FAERS Safety Report 8428268-5 (Version None)
Quarter: 2012Q2

REPORT INFORMATION
  Report Type: 
  Country: None (occurrence: None)
  Receive Date: 20120611
  Receipt Date: 20120412
  Transmission Date: 20120825
  Serious: No
  Sender: FDA-Public Use
  Company Number: US-ASTRAZENECA-2012SE17487

PATIENT
  Sex: Female

DRUGS (1)
  1. PULMICORT FLEXHALER [Suspect]
     Dosage: 180 MCG, ONE TO TWO PUFFS TWICE DAILY
     Route: 055

REACTIONS (2)
  - INTENTIONAL DRUG MISUSE [None]
  - MACULAR DEGENERATION [None]
